FAERS Safety Report 25667704 (Version 3)
Quarter: 2025Q3

REPORT INFORMATION
  Report Type: Report from Study
  Country: US (occurrence: US)
  Receive Date: 20250811
  Receipt Date: 20250828
  Transmission Date: 20251020
  Serious: Yes (Hospitalization, Other)
  Sender: ABBVIE
  Company Number: US-ABBVIE-6366629

PATIENT
  Age: 64 Year
  Sex: Female

DRUGS (1)
  1. RINVOQ [Suspect]
     Active Substance: UPADACITINIB
     Indication: Rheumatoid arthritis
     Route: 048
     Dates: start: 20200110

REACTIONS (15)
  - Morel-Lavallee seroma [Recovering/Resolving]
  - Cellulitis [Unknown]
  - Burning sensation [Unknown]
  - Hypersomnia [Unknown]
  - Ankle fracture [Unknown]
  - Animal scratch [Unknown]
  - Foot fracture [Unknown]
  - Skin mass [Unknown]
  - Skin haemorrhage [Unknown]
  - Injection site nodule [Unknown]
  - Injection site pain [Unknown]
  - Device issue [Unknown]
  - Haemorrhage [Unknown]
  - Platelet count decreased [Unknown]
  - Lower limb fracture [Unknown]

NARRATIVE: CASE EVENT DATE: 20250701
